FAERS Safety Report 9835207 (Version 1)
Quarter: 2014Q1

REPORT INFORMATION
  Report Type: Spontaneous
  Country: US (occurrence: US)
  Receive Date: 20140122
  Receipt Date: 20140122
  Transmission Date: 20141002
  Serious: Yes (Hospitalization)
  Sender: FDA-Public Use
  Company Number: US-009507513-1401USA008374

PATIENT
  Sex: Male

DRUGS (1)
  1. PRIMAXIN I.V. [Suspect]
     Dosage: UNK
     Route: 042

REACTIONS (3)
  - Adverse event [Not Recovered/Not Resolved]
  - Tachycardia [Not Recovered/Not Resolved]
  - Blood pressure increased [Not Recovered/Not Resolved]
